FAERS Safety Report 7102804-3 (Version None)
Quarter: 2010Q4

REPORT INFORMATION
  Report Type: 
  Country: None (occurrence: None)
  Receive Date: 20101115
  Receipt Date: 20090807
  Transmission Date: 20110411
  Serious: No
  Sender: FDA-Public Use
  Company Number: US-KINGPHARMUSA00001-K200901042

PATIENT
  Sex: Male
  Weight: 86.168 kg

DRUGS (4)
  1. SONATA [Suspect]
     Indication: INSOMNIA
     Dosage: 10-30 MG, NIGHTLY
     Route: 048
     Dates: start: 20080201
  2. VITAMINS [Concomitant]
  3. FOLIC ACID W/VITAMINS NOS [Concomitant]
  4. ANDROGEL [Concomitant]

REACTIONS (1)
  - DRUG EFFECT DECREASED [None]
